FAERS Safety Report 6698995-9 (Version None)
Quarter: 2010Q2

REPORT INFORMATION
  Report Type: 
  Country: None (occurrence: None)
  Receive Date: 20100427
  Receipt Date: 20100421
  Transmission Date: 20101027
  Serious: Yes (Hospitalization)
  Sender: FDA-Public Use
  Company Number: JP-BAYER-201011983BYL

PATIENT
  Age: 60 Year
  Sex: Male

DRUGS (1)
  1. CIPROFLOXACIN HCL [Suspect]
     Indication: BILIARY TRACT INFECTION
     Dosage: AS USED: 100 MG  UNIT DOSE: 100 MG
     Route: 048
     Dates: start: 20100401

REACTIONS (1)
  - AMMONIA INCREASED [None]
